FAERS Safety Report 13025160 (Version 2)
Quarter: 2017Q1

REPORT INFORMATION
  Report Type: Spontaneous
  Country: US (occurrence: US)
  Receive Date: 20161214
  Receipt Date: 20170114
  Transmission Date: 20170428
  Serious: Yes (Other)
  Sender: FDA-Public Use
  Company Number: US-BAXTER-2016BAX061999

PATIENT
  Age: 64 Year
  Sex: Male
  Weight: 104.7 kg

DRUGS (9)
  1. DOCETAXEL. [Suspect]
     Active Substance: DOCETAXEL
     Indication: MALIGNANT FIBROUS HISTIOCYTOMA METASTATIC
     Route: 065
  2. DOXORUBICIN [Suspect]
     Active Substance: DOXORUBICIN
     Indication: MALIGNANT FIBROUS HISTIOCYTOMA METASTATIC
     Dosage: 3 CYCLES
     Route: 065
  3. XALKORI [Suspect]
     Active Substance: CRIZOTINIB
     Indication: DISEASE PROGRESSION
     Dosage: 1 CAPSULE, 30 DAY SUPPLY;5 REFILL
     Route: 048
     Dates: start: 201502
  4. AVAPRO [Concomitant]
     Active Substance: IRBESARTAN
     Indication: PRODUCT USED FOR UNKNOWN INDICATION
     Dosage: 300(UNITS NOT REPORTED) DAILY
     Route: 065
  5. LIPITOR [Concomitant]
     Active Substance: ATORVASTATIN CALCIUM
     Indication: PRODUCT USED FOR UNKNOWN INDICATION
     Dosage: 40(UNIT NOT REPORTED)DAILY
     Route: 065
  6. IFOSFAMIDE FOR INJECTION [Suspect]
     Active Substance: IFOSFAMIDE
     Indication: MALIGNANT FIBROUS HISTIOCYTOMA METASTATIC
     Dosage: 3 CYCLES
     Route: 065
  7. GEMCITABINE [Suspect]
     Active Substance: GEMCITABINE\GEMCITABINE HYDROCHLORIDE
     Indication: MALIGNANT FIBROUS HISTIOCYTOMA METASTATIC
     Dosage: 3 CYCLES
     Route: 065
  8. MESNA. [Suspect]
     Active Substance: MESNA
     Indication: MALIGNANT FIBROUS HISTIOCYTOMA METASTATIC
     Dosage: 3 CYCLES
     Route: 065
  9. ASA [Concomitant]
     Active Substance: ASPIRIN
     Indication: PRODUCT USED FOR UNKNOWN INDICATION
     Dosage: 81(UNIT NOT REPORTED) DAILY
     Route: 065

REACTIONS (2)
  - Oedema peripheral [Recovered/Resolved]
  - Disease progression [Recovering/Resolving]

NARRATIVE: CASE EVENT DATE: 201408
